FAERS Safety Report 7187325-4 (Version None)
Quarter: 2010Q4

REPORT INFORMATION
  Report Type: 
  Country: None (occurrence: None)
  Receive Date: 20101222
  Receipt Date: 20101210
  Transmission Date: 20110411
  Serious: Yes (Hospitalization)
  Sender: FDA-Public Use
  Company Number: JP-MERCK-1010USA02799

PATIENT
  Age: 74 Year
  Sex: Female

DRUGS (5)
  1. FOSAMAX [Suspect]
     Indication: OSTEOPOROSIS
     Route: 048
     Dates: start: 20080825, end: 20080908
  2. FOSAMAX [Suspect]
     Route: 048
     Dates: end: 20080701
  3. CRESTOR [Concomitant]
     Indication: HYPERLIPIDAEMIA
     Route: 048
  4. RENIVEZE [Concomitant]
     Indication: HYPERTENSION
     Route: 048
  5. AMLODIPINE [Concomitant]
     Indication: HYPERTENSION
     Route: 048

REACTIONS (1)
  - FEMUR FRACTURE [None]
